FAERS Safety Report 7177585-8 (Version None)
Quarter: 2010Q4

REPORT INFORMATION
  Report Type: 
  Country: None (occurrence: None)
  Receive Date: 20101220
  Receipt Date: 20101214
  Transmission Date: 20110411
  Serious: Yes (Death, Other)
  Sender: FDA-Public Use
  Company Number: CN-PFIZER INC-2010172063

PATIENT
  Age: 76 Year
  Sex: Female

DRUGS (2)
  1. ZYVOX [Suspect]
     Indication: INFECTION
     Dosage: 0.6 (UNIT DOSE NOT PROVIDED) ONCE PER 12 HOURS
     Route: 041
     Dates: start: 20100923, end: 20100924
  2. ZYVOX [Suspect]
     Dosage: 0.6 (UNITS NOT PROVIDED ) ONCE EVERY 12 HOURS
     Route: 045
     Dates: start: 20100925, end: 20100928

REACTIONS (5)
  - ANAEMIA [None]
  - HAEMOGLOBIN INCREASED [None]
  - HYPERKALAEMIA [None]
  - MULTI-ORGAN FAILURE [None]
  - MYOGLOBIN BLOOD INCREASED [None]
